FAERS Safety Report 9862780 (Version 2)
Quarter: 2014Q1

REPORT INFORMATION
  Report Type: Spontaneous
  Country: GB (occurrence: GB)
  Receive Date: 20140203
  Receipt Date: 20140203
  Transmission Date: 20141002
  Serious: Yes (Life-Threatening, Hospitalization)
  Sender: FDA-Public Use
  Company Number: PHFR2013GB006587

PATIENT
  Sex: Male
  Weight: 67 kg

DRUGS (6)
  1. DAPTOMYCIN [Suspect]
     Indication: ENDOCARDITIS STAPHYLOCOCCAL
     Dosage: 8 MG/KG, DAILY
     Route: 042
     Dates: start: 20131117, end: 20131119
  2. DAPTOMYCIN [Suspect]
     Indication: OFF LABEL USE
  3. CLINDAMYCIN [Suspect]
     Dosage: 48 G, UNK
     Route: 042
     Dates: start: 20131117, end: 20131119
  4. VANCOMYCIN [Concomitant]
  5. GENTAMICIN [Concomitant]
  6. RIFAMPICIN [Concomitant]

REACTIONS (7)
  - Necrotising fasciitis [Unknown]
  - Staphylococcal infection [Unknown]
  - Limb discomfort [Unknown]
  - Joint swelling [Unknown]
  - Chest pain [Unknown]
  - Staphylococcal sepsis [Unknown]
  - Drug administered to patient of inappropriate age [Unknown]
